FAERS Safety Report 18397418 (Version 1)
Quarter: 2020Q4

REPORT INFORMATION
  Report Type: Spontaneous
  Country: CN (occurrence: CN)
  Receive Date: 20201019
  Receipt Date: 20201019
  Transmission Date: 20210114
  Serious: Yes (Hospitalization, Disabling)
  Sender: FDA-Public Use
  Company Number: NVSC2020CN277111

PATIENT
  Age: 36 Year
  Sex: Female
  Weight: 70 kg

DRUGS (7)
  1. TEGRETOL [Suspect]
     Active Substance: CARBAMAZEPINE
     Indication: HYPERTENSION
  2. METHYLPREDNISOLONE. [Concomitant]
     Active Substance: METHYLPREDNISOLONE
     Indication: HORMONE THERAPY
     Dosage: 40 MG, BID
     Route: 042
  3. TAZOCIN [Concomitant]
     Active Substance: PIPERACILLIN SODIUM\TAZOBACTAM SODIUM
     Indication: INFECTION
     Dosage: 4.5 G, Q8H (IVGTT)
     Route: 042
  4. MEROPENEM. [Concomitant]
     Active Substance: MEROPENEM
     Indication: PRODUCT USED FOR UNKNOWN INDICATION
     Dosage: UNK
     Route: 065
  5. METHYLPREDNISOLONE. [Concomitant]
     Active Substance: METHYLPREDNISOLONE
     Dosage: 40 MG, QD
     Route: 042
  6. CARBAMAZEPIN [Concomitant]
     Active Substance: CARBAMAZEPINE
     Indication: TRIGEMINAL NEURALGIA
     Dosage: UNK
     Route: 065
  7. TEGRETOL [Suspect]
     Active Substance: CARBAMAZEPINE
     Indication: CEREBRAL INFARCTION
     Dosage: 0.2 G, TID
     Route: 048
     Dates: start: 20200612, end: 20200621

REACTIONS (3)
  - Rash [Recovering/Resolving]
  - Oral mucosal blistering [Recovering/Resolving]
  - Dermatitis allergic [Recovering/Resolving]

NARRATIVE: CASE EVENT DATE: 20200620
